FAERS Safety Report 18052164 (Version 1)
Quarter: 2020Q3

REPORT INFORMATION
  Report Type: Spontaneous
  Country: CA (occurrence: CA)
  Receive Date: 20200721
  Receipt Date: 20200721
  Transmission Date: 20201103
  Serious: Yes (Hospitalization, Other)
  Sender: FDA-Public Use
  Company Number: CA-TEVA-2020-CA-1804441

PATIENT
  Age: 52 Year
  Sex: Female

DRUGS (3)
  1. METHYLPREDNISOLONE. [Suspect]
     Active Substance: METHYLPREDNISOLONE
     Indication: PRODUCT USED FOR UNKNOWN INDICATION
     Dosage: 1000 MILLIGRAM DAILY;
     Route: 042
  2. IMMUNE GLOBULIN (HUMAN) [Suspect]
     Active Substance: HUMAN IMMUNOGLOBULIN G
     Indication: PRODUCT USED FOR UNKNOWN INDICATION
     Route: 042
  3. OLANZAPINE. [Suspect]
     Active Substance: OLANZAPINE
     Indication: SCHIZOPHRENIA
     Dosage: 15 MILLIGRAM DAILY;
     Route: 048

REACTIONS (10)
  - Encephalitis autoimmune [Unknown]
  - Eosinophil count abnormal [Unknown]
  - Red blood cells urine [Unknown]
  - Alanine aminotransferase increased [Unknown]
  - Rash [Unknown]
  - Pyrexia [Unknown]
  - Glomerular filtration rate decreased [Unknown]
  - Haemoglobin urine [Unknown]
  - Aspartate aminotransferase increased [Unknown]
  - White blood cells urine positive [Unknown]
